FAERS Safety Report 10859881 (Version 1)
Quarter: 2015Q1

REPORT INFORMATION
  Report Type: Spontaneous
  Country: US (occurrence: US)
  Receive Date: 20150223
  Receipt Date: 20150223
  Transmission Date: 20150721
  Serious: Yes (Hospitalization)
  Sender: FDA-Public Use
  Company Number: US-CELGENEUS-163-21880-14074096

PATIENT
  Age: 48 Year
  Sex: Male
  Weight: 69.46 kg

DRUGS (50)
  1. CLINDAMYCIN [Concomitant]
     Active Substance: CLINDAMYCIN\CLINDAMYCIN PHOSPHATE
     Indication: PRODUCT USED FOR UNKNOWN INDICATION
     Route: 048
     Dates: start: 20140715
  2. LORAZEPAM. [Concomitant]
     Active Substance: LORAZEPAM
     Indication: PRODUCT USED FOR UNKNOWN INDICATION
     Route: 048
     Dates: start: 20140703
  3. PROCHLORPERAZINE. [Concomitant]
     Active Substance: PROCHLORPERAZINE
     Indication: PRODUCT USED FOR UNKNOWN INDICATION
     Route: 048
     Dates: start: 20140703
  4. RITUXIMAB [Concomitant]
     Active Substance: RITUXIMAB
     Route: 041
     Dates: start: 20130909
  5. POTASSIUM CHLORIDE. [Concomitant]
     Active Substance: POTASSIUM CHLORIDE
     Indication: PRODUCT USED FOR UNKNOWN INDICATION
     Route: 048
  6. MORPHINE [Concomitant]
     Active Substance: MORPHINE
     Indication: PRODUCT USED FOR UNKNOWN INDICATION
     Route: 065
  7. REVLIMID [Suspect]
     Active Substance: LENALIDOMIDE
     Route: 048
     Dates: start: 20140502, end: 20140716
  8. PROCHLORPERAZINE. [Concomitant]
     Active Substance: PROCHLORPERAZINE
     Route: 048
  9. RITUXIMAB [Concomitant]
     Active Substance: RITUXIMAB
     Dosage: 2600 MILLIGRAM
     Route: 041
     Dates: start: 20130620
  10. RITUXIMAB [Concomitant]
     Active Substance: RITUXIMAB
     Route: 041
     Dates: start: 20140707
  11. PERCOCET [Concomitant]
     Active Substance: ACETAMINOPHEN\OXYCODONE HYDROCHLORIDE
     Route: 048
  12. POTASSIUM CHLORIDE. [Concomitant]
     Active Substance: POTASSIUM CHLORIDE
     Route: 048
  13. ACETAMINOPHEN. [Concomitant]
     Active Substance: ACETAMINOPHEN
     Indication: PRODUCT USED FOR UNKNOWN INDICATION
     Route: 065
  14. MAGNESIUM SULFATE. [Concomitant]
     Active Substance: MAGNESIUM SULFATE
     Route: 065
  15. ONDANSETRON [Concomitant]
     Active Substance: ONDANSETRON
     Indication: PRODUCT USED FOR UNKNOWN INDICATION
     Route: 065
  16. GRANIX [Concomitant]
     Active Substance: TBO-FILGRASTIM
     Indication: PRODUCT USED FOR UNKNOWN INDICATION
     Route: 065
  17. NEUPOGEN [Concomitant]
     Active Substance: FILGRASTIM
     Indication: PRODUCT USED FOR UNKNOWN INDICATION
     Route: 065
     Dates: start: 20130520
  18. OXYCODONE AND ACETAMINOPHEN [Concomitant]
     Active Substance: ACETAMINOPHEN\OXYCODONE\OXYCODONE HYDROCHLORIDE
     Route: 048
  19. RITUXIMAB [Concomitant]
     Active Substance: RITUXIMAB
     Route: 041
     Dates: start: 20130520
  20. RITUXIMAB [Concomitant]
     Active Substance: RITUXIMAB
     Route: 041
     Dates: start: 20131122
  21. RITUXIMAB [Concomitant]
     Active Substance: RITUXIMAB
     Route: 041
     Dates: start: 20140804
  22. IBUPROFEN. [Concomitant]
     Active Substance: IBUPROFEN
     Route: 048
  23. POTASSIUM CHLORIDE. [Concomitant]
     Active Substance: POTASSIUM CHLORIDE
     Route: 048
  24. ASPIRIN. [Concomitant]
     Active Substance: ASPIRIN
     Indication: PRODUCT USED FOR UNKNOWN INDICATION
     Route: 048
  25. MORPHINE [Concomitant]
     Active Substance: MORPHINE
     Route: 065
  26. NEUPOGEN [Concomitant]
     Active Substance: FILGRASTIM
     Route: 065
  27. REVLIMID [Suspect]
     Active Substance: LENALIDOMIDE
     Indication: NON-HODGKIN^S LYMPHOMA RECURRENT
     Route: 048
     Dates: start: 20131204
  28. SULFAMETHOXAZOLE-TRIMETHOPRIM (SMZ) [Concomitant]
     Active Substance: SULFAMETHOXAZOLE\TRIMETHOPRIM
     Indication: PRODUCT USED FOR UNKNOWN INDICATION
     Dosage: 800/160MG
     Route: 048
     Dates: start: 20140715
  29. RITUXIMAB [Concomitant]
     Active Substance: RITUXIMAB
     Indication: FEBRILE NEUTROPENIA
     Route: 041
     Dates: start: 20130122
  30. RITUXIMAB [Concomitant]
     Active Substance: RITUXIMAB
     Route: 041
     Dates: start: 20130219
  31. IBUPROFEN. [Concomitant]
     Active Substance: IBUPROFEN
     Indication: PRODUCT USED FOR UNKNOWN INDICATION
     Route: 048
  32. FILGRASTIM [Concomitant]
     Active Substance: FILGRASTIM
     Indication: PRODUCT USED FOR UNKNOWN INDICATION
     Route: 065
  33. RITUXIMAB [Concomitant]
     Active Substance: RITUXIMAB
     Route: 041
     Dates: start: 20130319
  34. RITUXIMAB [Concomitant]
     Active Substance: RITUXIMAB
     Route: 041
     Dates: start: 20131003
  35. CLARITIN [Concomitant]
     Active Substance: LORATADINE
     Indication: PRODUCT USED FOR UNKNOWN INDICATION
     Route: 065
  36. POTASSIUM CHLORIDE. [Concomitant]
     Active Substance: POTASSIUM CHLORIDE
     Route: 048
  37. PHOSPHORUS [Concomitant]
     Active Substance: PHOSPHORUS
     Indication: PRODUCT USED FOR UNKNOWN INDICATION
     Route: 065
  38. SODIUM PHOSPHATE [Concomitant]
     Active Substance: SODIUM PHOSPHATE
     Route: 041
  39. ZOLPIDEM [Concomitant]
     Active Substance: ZOLPIDEM\ZOLPIDEM TARTRATE
     Indication: PRODUCT USED FOR UNKNOWN INDICATION
     Route: 065
  40. POTASSIUM CHLORIDE. [Concomitant]
     Active Substance: POTASSIUM CHLORIDE
     Route: 048
  41. VANCOMYCIN [Concomitant]
     Active Substance: VANCOMYCIN
     Indication: PRODUCT USED FOR UNKNOWN INDICATION
     Route: 041
  42. POLYETHYLENE GLYCOL [Concomitant]
     Active Substance: POLYETHYLENE GLYCOLS
     Indication: PRODUCT USED FOR UNKNOWN INDICATION
     Route: 065
  43. SODIUM PHOSPHATE [Concomitant]
     Active Substance: SODIUM PHOSPHATE
     Indication: PRODUCT USED FOR UNKNOWN INDICATION
     Route: 041
  44. NEUPOGEN [Concomitant]
     Active Substance: FILGRASTIM
     Route: 065
     Dates: start: 20130620
  45. OXYCODONE AND ACETAMINOPHEN [Concomitant]
     Active Substance: ACETAMINOPHEN\OXYCODONE\OXYCODONE HYDROCHLORIDE
     Indication: PRODUCT USED FOR UNKNOWN INDICATION
     Dosage: 5-325MG
     Route: 048
     Dates: start: 20140703
  46. PERCOCET [Concomitant]
     Active Substance: ACETAMINOPHEN\OXYCODONE HYDROCHLORIDE
     Indication: PRODUCT USED FOR UNKNOWN INDICATION
     Dosage: 5-325MG
     Route: 048
  47. LORATADINE. [Concomitant]
     Active Substance: LORATADINE
     Indication: PRODUCT USED FOR UNKNOWN INDICATION
     Route: 065
  48. MAGNESIUM SULFATE. [Concomitant]
     Active Substance: MAGNESIUM SULFATE
     Indication: PRODUCT USED FOR UNKNOWN INDICATION
     Route: 065
  49. MAGNESIUM SULFATE. [Concomitant]
     Active Substance: MAGNESIUM SULFATE
     Route: 065
  50. MORPHINE [Concomitant]
     Active Substance: MORPHINE
     Route: 065

REACTIONS (4)
  - Febrile neutropenia [Recovered/Resolved]
  - Pneumonia [Recovered/Resolved]
  - Red blood cell count decreased [Recovered/Resolved]
  - White blood cell count decreased [Recovered/Resolved]

NARRATIVE: CASE EVENT DATE: 2014
